FAERS Safety Report 9311775 (Version 1)
Quarter: 2013Q2

REPORT INFORMATION
  Report Type: Spontaneous
  Country: BR (occurrence: BR)
  Receive Date: 20130528
  Receipt Date: 20130528
  Transmission Date: 20140414
  Serious: Yes (Other)
  Sender: FDA-Public Use
  Company Number: PHHY2013BR048832

PATIENT
  Age: 52 Year
  Sex: Male

DRUGS (1)
  1. DIOVAN AMLO FIX [Suspect]
     Dosage: 1 DF(320/5 MG), Q12H
     Dates: start: 20130510, end: 20130514

REACTIONS (7)
  - Infarction [Recovered/Resolved]
  - Arrhythmia [Recovered/Resolved]
  - Erythema [Recovered/Resolved]
  - Blood pressure abnormal [Recovered/Resolved]
  - Deformity thorax [Recovered/Resolved]
  - Neck deformity [Recovered/Resolved]
  - Dyspnoea [Recovered/Resolved]
